FAERS Safety Report 4974531-X (Version None)
Quarter: 2006Q2

REPORT INFORMATION
  Report Type: 
  Country: None (occurrence: None)
  Receive Date: 20060410
  Receipt Date: 20060327
  Transmission Date: 20061013
  Serious: Yes (Hospitalization)
  Sender: FDA-Public Use
  Company Number: 2006042849

PATIENT
  Age: 74 Year
  Sex: Male
  Weight: 87 kg

DRUGS (4)
  1. VFEND [Suspect]
     Indication: ASPERGILLOMA
  2. SYMBICORT (BUDESONIDE, FORMOTEROL FUMARATE) [Concomitant]
  3. SPIRIVA [Concomitant]
  4. BERODUAL (FENOTEROL HYDROBROMIDE, IPRATROPIUM BROMIDE) [Concomitant]

REACTIONS (4)
  - ACTIVITIES OF DAILY LIVING IMPAIRED [None]
  - ALVEOLITIS ALLERGIC [None]
  - NIGHT SWEATS [None]
  - PNEUMONIA [None]
